FAERS Safety Report 5821471-X (Version None)
Quarter: 2008Q3

REPORT INFORMATION
  Report Type: 
  Country: None (occurrence: None)
  Receive Date: 20080724
  Receipt Date: 20080716
  Transmission Date: 20090109
  Serious: Yes (Other)
  Sender: FDA-Public Use
  Company Number: B0529330A

PATIENT
  Age: 51 Year
  Sex: Female

DRUGS (2)
  1. SERETIDE [Suspect]
     Indication: ASTHMA
     Dosage: 2PUFF TWICE PER DAY
     Route: 055
     Dates: start: 20050401
  2. VENTOLIN [Suspect]
     Dosage: 100MCG AS REQUIRED
     Dates: start: 20050401

REACTIONS (5)
  - ASTHMA [None]
  - DYSPNOEA [None]
  - INITIAL INSOMNIA [None]
  - LOWER RESPIRATORY TRACT INFECTION [None]
  - SEASONAL ALLERGY [None]
